FAERS Safety Report 19936097 (Version 1)
Quarter: 2021Q4

REPORT INFORMATION
  Report Type: Spontaneous
  Country: GR (occurrence: GR)
  Receive Date: 20211008
  Receipt Date: 20211008
  Transmission Date: 20220303
  Serious: Yes (Other)
  Sender: FDA-Public Use
  Company Number: GR-JNJFOC-20210958712

PATIENT
  Age: 5 Year
  Sex: Male

DRUGS (3)
  1. ZAVESCA [Suspect]
     Active Substance: MIGLUSTAT
     Indication: Niemann-Pick disease
     Route: 048
  2. LEVETIRACETAM [Suspect]
     Active Substance: LEVETIRACETAM
     Indication: Niemann-Pick disease
     Route: 065
  3. VALPROATE SODIUM [Suspect]
     Active Substance: VALPROATE SODIUM
     Indication: Niemann-Pick disease
     Route: 065

REACTIONS (5)
  - Seizure [Recovered/Resolved]
  - Infusion related reaction [Recovered/Resolved]
  - Rash [Recovered/Resolved]
  - Dizziness [Recovered/Resolved]
  - Ataxia [Recovered/Resolved]
